FAERS Safety Report 8453604 (Version 2)
Quarter: 2013Q2

REPORT INFORMATION
  Report Type: Spontaneous
  Country: US (occurrence: None)
  Receive Date: 20120221
  Receipt Date: 20120518
  Transmission Date: 20140414
  Serious: Yes (Other)
  Sender: FDA-Public Use
  Company Number: 1000027112

PATIENT
  Age: 25 Year
  Sex: Male

DRUGS (3)
  1. VIIBRYD (VILAZODONE)(10 MILLIGRAM, TABLETS) [Suspect]
     Indication: DEPRESSION
     Route: 048
     Dates: start: 201112, end: 201112
  2. VIIBRYD [Suspect]
     Indication: DEPRESSION
     Route: 048
     Dates: start: 201112, end: 20120104
  3. XANAX [Concomitant]

REACTIONS (4)
  - ENERGY INCREASED [None]
  - INSOMNIA [None]
  - PANIC DISORDER [None]
  - MUSCLE TIGHTNESS [None]
